FAERS Safety Report 18603484 (Version 1)
Quarter: 2020Q4

REPORT INFORMATION
  Report Type: Spontaneous
  Country: US (occurrence: US)
  Receive Date: 20201210
  Receipt Date: 20201210
  Transmission Date: 20210114
  Serious: No
  Sender: FDA-Public Use
  Company Number: US-LUPIN PHARMACEUTICALS INC.-2020-06818

PATIENT
  Sex: Male
  Weight: 83.9 kg

DRUGS (1)
  1. LEVETIRACETAM EXTENDED RELEASE TABLET USP, 750 MG [Suspect]
     Active Substance: LEVETIRACETAM
     Indication: EPILEPSY
     Dosage: 0.5 DOSAGE FORM, QD (1/2 TABLET DAILY)
     Route: 048

REACTIONS (5)
  - Irritability [Not Recovered/Not Resolved]
  - Gait disturbance [Unknown]
  - Wrong technique in product usage process [Unknown]
  - Underdose [Unknown]
  - Constipation [Not Recovered/Not Resolved]
